FAERS Safety Report 13573320 (Version 1)
Quarter: 2017Q2

REPORT INFORMATION
  Report Type: Report from Study
  Country: IT (occurrence: IT)
  Receive Date: 20170523
  Receipt Date: 20170523
  Transmission Date: 20170830
  Serious: Yes (Other)
  Sender: FDA-Public Use
  Company Number: IT-PFIZER INC-2017221521

PATIENT
  Age: 69 Year
  Sex: Male

DRUGS (2)
  1. DTIC /00372801/ [Suspect]
     Active Substance: DACARBAZINE CITRATE
     Indication: FIBROMA
     Dosage: 800 MG/M2, OVER 60 MIN, IN 2 DAYS EVERY 3 WEEKS
     Route: 042
  2. DOXORUBICIN HCL [Suspect]
     Active Substance: DOXORUBICIN HYDROCHLORIDE
     Indication: FIBROMA
     Dosage: 75 MG/M2, EVERY 3 WEEKS
     Route: 040

REACTIONS (1)
  - Gamma-glutamyltransferase increased [Unknown]
